FAERS Safety Report 10084681 (Version 1)
Quarter: 2014Q2

REPORT INFORMATION
  Report Type: Report from Study
  Country: US (occurrence: US)
  Receive Date: 20140417
  Receipt Date: 20140417
  Transmission Date: 20141212
  Serious: Yes (Hospitalization)
  Sender: FDA-Public Use
  Company Number: US-PFIZER INC-2014103765

PATIENT
  Age: 48 Year
  Sex: Female
  Weight: 70.3 kg

DRUGS (10)
  1. DILANTIN-125 [Suspect]
     Indication: EPILEPSY
     Dosage: 100 MG, 3X/DAY
  2. DILANTIN-125 [Suspect]
     Dosage: 100 MG, 2X/DAY
     Dates: end: 20140204
  3. DILANTIN-125 [Suspect]
     Dosage: 100/50/100, UNK
  4. LACOSAMIDE [Suspect]
     Indication: EPILEPSY
     Dosage: 50 MG, 2X/DAY
     Route: 048
     Dates: start: 2013, end: 201312
  5. LACOSAMIDE [Suspect]
     Dosage: 100 MG, 2X/DAY
     Route: 048
     Dates: start: 20131223
  6. KEPPRA [Suspect]
     Indication: EPILEPSY
     Dosage: 1500 MG, 500 MG AM/ 1000 MG PM, UNK
     Route: 048
  7. LAMICTAL [Concomitant]
     Dosage: UNK
  8. PLAQUENIL [Concomitant]
     Dosage: UNK
  9. DILAUDID [Concomitant]
     Dosage: UNK
     Dates: start: 20140110, end: 20140113
  10. DILAUDID [Concomitant]
     Dosage: UNK
     Dates: start: 20140114

REACTIONS (3)
  - Vomiting [Unknown]
  - Nausea [Recovered/Resolved]
  - Anticonvulsant drug level increased [Recovered/Resolved]
